FAERS Safety Report 25394747 (Version 1)
Quarter: 2025Q2

REPORT INFORMATION
  Report Type: Spontaneous
  Country: US (occurrence: US)
  Receive Date: 20250604
  Receipt Date: 20250604
  Transmission Date: 20250716
  Serious: Yes (Hospitalization)
  Sender: AMGEN
  Company Number: US-AMGEN-USASP2025105053

PATIENT
  Age: 34 Year
  Sex: Female

DRUGS (9)
  1. RITUXIMAB [Suspect]
     Active Substance: RITUXIMAB
     Indication: Thrombotic thrombocytopenic purpura
     Dosage: 375 MILLIGRAM/SQ. METER, Q4WK
     Route: 040
  2. PREDNISONE [Concomitant]
     Active Substance: PREDNISONE
     Indication: Thrombotic thrombocytopenic purpura
     Dosage: 100 MILLIGRAM, QD
     Route: 048
  3. PREDNISONE [Concomitant]
     Active Substance: PREDNISONE
     Route: 048
  4. ALTEPLASE [Concomitant]
     Active Substance: ALTEPLASE
  5. APIXABAN [Concomitant]
     Active Substance: APIXABAN
     Dosage: 10 MILLIGRAM, BID FOR ONE WEEK
     Route: 048
  6. APIXABAN [Concomitant]
     Active Substance: APIXABAN
     Dosage: 5 MILLIGRAM, BID
     Route: 048
  7. METHYLPREDNISOLONE [Concomitant]
     Active Substance: METHYLPREDNISOLONE
     Indication: Thrombotic thrombocytopenic purpura
     Dosage: 80 MILLIGRAM, QD
     Route: 040
  8. CAPLACIZUMAB [Concomitant]
     Active Substance: CAPLACIZUMAB
     Indication: Thrombotic thrombocytopenic purpura
     Dosage: 11 MILLIGRAM, BID (DAY 1)
     Route: 048
  9. CAPLACIZUMAB [Concomitant]
     Active Substance: CAPLACIZUMAB
     Dosage: 11 MILLIGRAM, QD
     Route: 048

REACTIONS (2)
  - Ischaemic stroke [Unknown]
  - Off label use [Unknown]
